FAERS Safety Report 7734569-6 (Version None)
Quarter: 2011Q3

REPORT INFORMATION
  Report Type: 
  Country: None (occurrence: None)
  Receive Date: 20110907
  Receipt Date: 20110830
  Transmission Date: 20111222
  Serious: Yes (Hospitalization)
  Sender: FDA-Public Use
  Company Number: ZA-VIIV HEALTHCARE LIMITED-B0745393A

PATIENT
  Age: 42 Year
  Sex: Female

DRUGS (2)
  1. LAMIVUDINE [Suspect]
     Indication: INTENTIONAL SELF-INJURY
     Dosage: 60TAB PER DAY
     Route: 065
  2. STAVUDINE [Suspect]
     Indication: INTENTIONAL SELF-INJURY
     Dosage: 60TAB PER DAY
     Route: 065

REACTIONS (4)
  - OVERDOSE [None]
  - ABDOMINAL PAIN [None]
  - SUICIDE ATTEMPT [None]
  - NAUSEA [None]
